FAERS Safety Report 9552321 (Version 1)
Quarter: 2013Q3

REPORT INFORMATION
  Report Type: Spontaneous
  Country: US (occurrence: None)
  Receive Date: 20130724
  Receipt Date: 20130724
  Transmission Date: 20140515
  Serious: Yes (Disabling)
  Sender: FDA-Public Use
  Company Number: PHEH2012US014279

PATIENT
  Age: 62 Year
  Sex: Female
  Weight: 73.2 kg

DRUGS (18)
  1. RECLAST [Suspect]
     Indication: OSTEOPOROSIS
     Dosage: 5 MG, PER YEAR, INTRAVENOUS
     Route: 042
     Dates: start: 20120706
  2. EFFEXOR (VENLAFAXINE HYDROCHLORIDE) UNKNOWN [Concomitant]
  3. VICODIN (HYDROCODONE BITARTRATE, PARACETAMOL) [Concomitant]
  4. TYLENOL (PARACETAMOL) [Concomitant]
  5. ZOCOR (SIMVASTATIN) [Concomitant]
  6. PREDNISONE (PREDNISONE) [Concomitant]
  7. TRASIDONE (TRASIDONE) [Concomitant]
  8. DEXLANSOPRAZOLE (DEXLANSOPRAZOLE) [Concomitant]
  9. SOMA (CARISOPRODOL) [Concomitant]
  10. SYNTHROID (LEVOTHYROXINE SODIUM) [Concomitant]
  11. PLAQUENIL (HYDROXYCHLOROQUINE SULFATE) / ORAL / TABLET, FILM COATED / 200 MILLIGRAM(S) [Concomitant]
  12. LYRICA (PREGABALIN) [Concomitant]
  13. PROBIOTICS (NO INGREDIENTS/SUBSTANCES) [Concomitant]
  14. FIBERCON [Concomitant]
  15. CENTRUM SILVER (ASCORBIC ACID, CALCIUM, MINERALS NOS, RETINOL, TOCOPHERYL ACETATE, VITAMIN B NOS, VITAMINS NOS, ZINC) [Concomitant]
  16. CALCIUM WITH VITAMIN D (CALCIUM PHOSPHATE, CALCIUM SODIUM LACTATE, ERGOCALCIFEROL) [Concomitant]
  17. HYDROCORTISONE (HYDROCORTISONE) [Concomitant]
  18. CENTINAL (CENTINAL) [Concomitant]

REACTIONS (9)
  - Pain [None]
  - Headache [None]
  - Head discomfort [None]
  - Dizziness [None]
  - Diarrhoea [None]
  - Arthralgia [None]
  - Myalgia [None]
  - Joint swelling [None]
  - Fatigue [None]
